FAERS Safety Report 17190871 (Version 1)
Quarter: 2019Q4

REPORT INFORMATION
  Report Type: Spontaneous
  Country: US (occurrence: US)
  Receive Date: 20191220
  Receipt Date: 20191220
  Transmission Date: 20200122
  Serious: Yes (Hospitalization)
  Sender: FDA-Public Use
  Company Number: None

PATIENT
  Age: 61 Year
  Sex: Male

DRUGS (12)
  1. CINACALCET. [Suspect]
     Active Substance: CINACALCET
     Indication: HYPERPARATHYROIDISM SECONDARY
     Route: 048
     Dates: start: 20160523, end: 20191220
  2. AMOXICILLIN 250MG [Concomitant]
     Active Substance: AMOXICILLIN
     Dates: start: 20191211
  3. PREDNISONE 5MG [Concomitant]
     Active Substance: PREDNISONE
     Dates: start: 20190111
  4. SMZ-TMP 400-80MG [Concomitant]
     Dates: start: 20190410
  5. PARICALCITOL 2MCG [Concomitant]
     Dates: start: 20190425
  6. NIZATIDINE 150MG [Concomitant]
     Dates: start: 20191015
  7. COLCHICINE 0.6MG [Concomitant]
     Active Substance: COLCHICINE
     Dates: start: 20191202
  8. TACROLIMUS. [Concomitant]
     Active Substance: TACROLIMUS
     Dates: start: 20181108
  9. MYCOPHENOLAT 500MG [Concomitant]
     Dates: start: 20191015
  10. FUROSEMIDE 40MG [Concomitant]
     Active Substance: FUROSEMIDE
     Dates: start: 20191011
  11. SIMVASTATIN 20MG [Concomitant]
     Active Substance: SIMVASTATIN
     Dates: start: 20190111
  12. METOPROL SUC ER 25MG [Concomitant]
     Dates: start: 20190913

REACTIONS (1)
  - Hospitalisation [None]

NARRATIVE: CASE EVENT DATE: 20191220
